FAERS Safety Report 8306030-1 (Version None)
Quarter: 2012Q2

REPORT INFORMATION
  Report Type: 
  Country: None (occurrence: None)
  Receive Date: 20120423
  Receipt Date: 20120409
  Transmission Date: 20120825
  Serious: Yes (Other)
  Sender: FDA-Public Use
  Company Number: CHPA2012CA009052

PATIENT
  Sex: Female

DRUGS (1)
  1. ALUMINUM HYDROXIDE AND MAGNESIUM TRISILICATE [Suspect]
     Indication: GASTROOESOPHAGEAL REFLUX DISEASE
     Dosage: UNK, UNK

REACTIONS (2)
  - ATRIAL FIBRILLATION [None]
  - OFF LABEL USE [None]
